FAERS Safety Report 9524649 (Version 2)
Quarter: 2014Q1

REPORT INFORMATION
  Report Type: Spontaneous
  Country: US (occurrence: US)
  Receive Date: 20130916
  Receipt Date: 20140128
  Transmission Date: 20141002
  Serious: Yes (Hospitalization)
  Sender: FDA-Public Use
  Company Number: US-PFIZER INC-2013262726

PATIENT
  Age: 41 Year
  Sex: Female
  Weight: 127 kg

DRUGS (19)
  1. IBUPROFEN [Suspect]
     Indication: PAIN
     Dosage: UNK
  2. IBUPROFEN [Suspect]
     Indication: FATIGUE
  3. IBUPROFEN [Suspect]
     Indication: INFLUENZA
  4. IBUPROFEN [Suspect]
     Indication: PAIN IN EXTREMITY
  5. IBUPROFEN [Suspect]
     Indication: BONE PAIN
  6. IBUPROFEN [Suspect]
     Indication: MYALGIA
  7. LYRICA [Suspect]
     Indication: FIBROMYALGIA
     Dosage: 100 MG, 2X/DAY
     Dates: start: 2013
  8. LYRICA [Suspect]
     Dosage: 150 MG, 2X/DAY
     Dates: start: 20130828, end: 20130829
  9. LYRICA [Suspect]
     Dosage: 150 MG, 1X/DAY  QDA
     Route: 048
  10. LASIX [Suspect]
     Indication: LOCAL SWELLING
     Dosage: 40 MG, 1X/DAY
  11. LASIX [Suspect]
     Indication: LOCAL SWELLING
  12. LASIX [Suspect]
     Indication: FLUID RETENTION
  13. KLONOPIN [Concomitant]
     Indication: ANXIETY
     Dosage: 1 MG, 2X/DAY
  14. KLONOPIN [Concomitant]
     Indication: PANIC ATTACK
  15. LAMICTAL [Concomitant]
     Indication: BIPOLAR DISORDER
     Dosage: 100 MG, 1X/DAY
  16. LAMICTAL [Concomitant]
     Indication: MOOD ALTERED
  17. ZOLOFT [Concomitant]
     Indication: DEPRESSION
     Dosage: 150 MG, 1X/DAY
  18. TRILEPTAL [Concomitant]
     Indication: BIPOLAR DISORDER
     Dosage: 600 MG AT NIGHT AND 300 MG IN MORNING, 2X/DAY
  19. BACLOFEN [Concomitant]
     Indication: MUSCLE SPASMS
     Dosage: 20 MG, AS NEEDED

REACTIONS (12)
  - Dyspnoea [Unknown]
  - Chest pain [Unknown]
  - Swelling [Unknown]
  - Blood triglycerides increased [Unknown]
  - Pain [Not Recovered/Not Resolved]
  - Fatigue [Not Recovered/Not Resolved]
  - Influenza [Not Recovered/Not Resolved]
  - Pain in extremity [Not Recovered/Not Resolved]
  - Bone pain [Not Recovered/Not Resolved]
  - Myalgia [Not Recovered/Not Resolved]
  - Blood potassium decreased [Unknown]
  - Drug ineffective [Unknown]
